FAERS Safety Report 5080429-1 (Version None)
Quarter: 2006Q3

REPORT INFORMATION
  Report Type: 
  Country: None (occurrence: None)
  Receive Date: 20060815
  Receipt Date: 20001212
  Transmission Date: 20061208
  Serious: Yes (Hospitalization)
  Sender: FDA-Public Use
  Company Number: FR-SOLVAY-00201000129

PATIENT
  Age: 82 Year
  Sex: Male

DRUGS (3)
  1. AMARYL [Concomitant]
     Indication: ILL-DEFINED DISORDER
     Dosage: DAILY DOSE: UNK. FREQUENCY:UNKNOWN
     Route: 065
  2. COVERSYL [Suspect]
     Indication: CARDIAC FAILURE CONGESTIVE
     Dosage: DAILY DOSE: UNK. FREQUENCY:UNKNOWN
     Route: 048
     Dates: start: 19960616
  3. GLUCOR [Concomitant]
     Indication: ILL-DEFINED DISORDER
     Dosage: DAILY DOSE: UNK. FREQUENCY:UNKNOWN
     Route: 065

REACTIONS (3)
  - ATRIAL FIBRILLATION [None]
  - DIABETES MELLITUS INADEQUATE CONTROL [None]
  - MALAISE [None]
